FAERS Safety Report 5478649-7 (Version None)
Quarter: 2007Q4

REPORT INFORMATION
  Report Type: 
  Country: None (occurrence: None)
  Receive Date: 20071005
  Receipt Date: 20071002
  Transmission Date: 20080405
  Serious: Yes (Death, Life-Threatening, Hospitalization, Disabling)
  Sender: FDA-Public Use
  Company Number: GB-GENENTECH-247950

PATIENT
  Age: 68 Year
  Sex: Male
  Weight: 64.4 kg

DRUGS (1)
  1. RITUXAN [Suspect]
     Indication: IDIOPATHIC THROMBOCYTOPENIC PURPURA
     Dosage: 700 MG, 4/WEEK
     Route: 041
     Dates: start: 20070717, end: 20070807

REACTIONS (1)
  - PULMONARY FIBROSIS [None]
